FAERS Safety Report 25192070 (Version 1)
Quarter: 2025Q2

REPORT INFORMATION
  Report Type: Spontaneous
  Country: RS (occurrence: RS)
  Receive Date: 20250414
  Receipt Date: 20250414
  Transmission Date: 20250717
  Serious: Yes (Other)
  Sender: AMGEN
  Company Number: RS-AMGEN-SRBSP2025068993

PATIENT
  Age: 59 Year
  Sex: Female

DRUGS (7)
  1. VECTIBIX [Suspect]
     Active Substance: PANITUMUMAB
     Indication: Small intestine adenocarcinoma
     Dosage: 6 MILLIGRAM/KILOGRAM, BM, Q2WK
     Route: 065
     Dates: start: 202110
  2. VECTIBIX [Suspect]
     Active Substance: PANITUMUMAB
     Indication: Hepatic cancer metastatic
  3. FLUOROURACIL [Concomitant]
     Active Substance: FLUOROURACIL
     Indication: Hepatic cancer metastatic
  4. OXALIPLATIN [Concomitant]
     Active Substance: OXALIPLATIN
     Indication: Hepatic cancer metastatic
  5. LEUCOVORIN [Concomitant]
     Active Substance: LEUCOVORIN\LEUCOVORIN CALCIUM
     Indication: Hepatic cancer metastatic
  6. IRINOTECAN [Concomitant]
     Active Substance: IRINOTECAN
     Indication: Hepatic cancer metastatic
  7. CAPECITABINE [Concomitant]
     Active Substance: CAPECITABINE
     Indication: Hepatic cancer metastatic

REACTIONS (9)
  - Small intestine adenocarcinoma [Unknown]
  - Metastases to lung [Unknown]
  - Metastases to liver [Unknown]
  - Pathological fracture [Unknown]
  - Spinal pain [Unknown]
  - Peripheral sensory neuropathy [Unknown]
  - Therapy partial responder [Unknown]
  - Rash [Unknown]
  - Pain [Unknown]

NARRATIVE: CASE EVENT DATE: 20220101
